FAERS Safety Report 9529919 (Version 3)
Quarter: 2013Q3

REPORT INFORMATION
  Report Type: Spontaneous
  Country: DE (occurrence: JP)
  Receive Date: 20130917
  Receipt Date: 20130924
  Transmission Date: 20140515
  Serious: Yes (Hospitalization)
  Sender: FDA-Public Use
  Company Number: DE-ACTELION-A-US2013-80077

PATIENT
  Age: 37 Year
  Sex: Female
  Weight: 51 kg

DRUGS (14)
  1. VENTAVIS BAYER SCHERING [Suspect]
     Indication: PULMONARY ARTERIAL HYPERTENSION
     Dosage: 5 UNK, UNK
     Route: 055
     Dates: start: 20130221
  2. TRACLEER [Suspect]
     Indication: PULMONARY ARTERIAL HYPERTENSION
     Dosage: 18.75 MG, TID
     Route: 048
  3. DIFLUCORTOLONE [Concomitant]
     Dosage: UNK
  4. LASIX [Concomitant]
     Dosage: UNK
  5. COVERSYL [Concomitant]
     Dosage: UNK
  6. ADCIRCA [Concomitant]
     Dosage: UNK
  7. ALDACTONE [Concomitant]
     Dosage: UNK
  8. XYZAL [Concomitant]
     Dosage: UNK
  9. CINAL [Concomitant]
     Dosage: UNK
  10. PYDOXAL [Concomitant]
     Dosage: UNK
  11. PANTOSIN [Concomitant]
     Dosage: UNK
  12. ALLELOCK [Concomitant]
     Dosage: UNK
  13. PROPETO [Concomitant]
     Dosage: UNK
  14. PROTOPIC [Concomitant]
     Dosage: UNK

REACTIONS (4)
  - Headache [Recovered/Resolved]
  - Post procedural haemorrhage [Recovering/Resolving]
  - Intestinal haemorrhage [Recovering/Resolving]
  - Large intestine polyp [Recovering/Resolving]
